FAERS Safety Report 4615789-6 (Version None)
Quarter: 2005Q2

REPORT INFORMATION
  Report Type: 
  Country: None (occurrence: None)
  Receive Date: 20050310
  Receipt Date: 20041118
  Transmission Date: 20051028
  Serious: Yes (Life-Threatening)
  Sender: FDA-Public Use
  Company Number: A03200402562

PATIENT
  Age: 53 Year
  Sex: Female
  Weight: 74.3899 kg

DRUGS (3)
  1. ELOXATIN [Suspect]
     Indication: COLON CANCER METASTATIC
     Dosage: 222 MG Q3W - INTRAVENOUS NOS
     Route: 042
     Dates: start: 20040701, end: 20040701
  2. DEXAMETHASONE [Concomitant]
  3. GRANISETRON [Concomitant]

REACTIONS (8)
  - DYSPHONIA [None]
  - DYSPNOEA [None]
  - ERYTHEMA [None]
  - HYPERSENSITIVITY [None]
  - PARAESTHESIA [None]
  - PRURITUS [None]
  - THROAT TIGHTNESS [None]
  - URTICARIA [None]
